FAERS Safety Report 10034267 (Version 3)
Quarter: 2014Q3

REPORT INFORMATION
  Report Type: Spontaneous
  Country: IT (occurrence: IT)
  Receive Date: 20140325
  Receipt Date: 20140911
  Transmission Date: 20150326
  Serious: Yes (Other)
  Sender: FDA-Public Use
  Company Number: IT-ACCORD-021478

PATIENT
  Age: 75 Year
  Sex: Male
  Weight: 81 kg

DRUGS (2)
  1. ERBITUX [Concomitant]
     Active Substance: CETUXIMAB
     Indication: COLON CANCER METASTATIC
     Dosage: 700 MG 1? DOSE THEN 450 MG EVERY WEEK
     Route: 042
     Dates: start: 20131218, end: 20140811
  2. FLUOROURACIL ACCORD [Suspect]
     Active Substance: FLUOROURACIL
     Indication: COLON CANCER METASTATIC
     Dosage: 200MG, 5ML SOLUTION FOR INJECTION ALSO TOOK 500MG 10 ML AND 2000MG 20ML BOTH SOLUTIONS FOR INFUSION
     Dates: start: 20131030

REACTIONS (7)
  - Skin burning sensation [Unknown]
  - Nasal mucosal disorder [Not Recovered/Not Resolved]
  - Conjunctivitis [Unknown]
  - Oral mucosal eruption [Not Recovered/Not Resolved]
  - Rash [Not Recovered/Not Resolved]
  - Erythema [Unknown]
  - Skin toxicity [Unknown]

NARRATIVE: CASE EVENT DATE: 20140102
